FAERS Safety Report 4468401-3 (Version None)
Quarter: 2004Q4

REPORT INFORMATION
  Report Type: 
  Country: None (occurrence: None)
  Receive Date: 20041004
  Receipt Date: 20040917
  Transmission Date: 20050328
  Serious: Yes (Other)
  Sender: FDA-Public Use
  Company Number: PHEH2004US07675

PATIENT
  Age: 86 Year
  Sex: Female

DRUGS (1)
  1. VISUDYNE [Suspect]
     Indication: MACULAR DEGENERATION

REACTIONS (2)
  - INFUSION RELATED REACTION [None]
  - MYOCARDIAL ISCHAEMIA [None]
